FAERS Safety Report 4514232-5 (Version None)
Quarter: 2004Q4

REPORT INFORMATION
  Report Type: 
  Country: None (occurrence: None)
  Receive Date: 20041130
  Receipt Date: 20041122
  Transmission Date: 20050328
  Serious: Yes (Congenital Anomaly, Other)
  Sender: FDA-Public Use
  Company Number: GB-ABBOTT-04P-167-0281509-00

PATIENT
  Age: 38 Week
  Sex: Female
  Weight: 3 kg

DRUGS (7)
  1. FERO-GRAD [Suspect]
     Indication: DRUG EXPOSURE DURING PREGNANCY
  2. INFLUENZA VACCINE [Suspect]
     Indication: DRUG EXPOSURE DURING PREGNANCY
  3. RANITIDINE [Suspect]
     Indication: DRUG EXPOSURE DURING PREGNANCY
  4. AMOXICILLIN [Suspect]
     Indication: DRUG EXPOSURE DURING PREGNANCY
  5. PERMETHRIN [Suspect]
     Indication: DRUG EXPOSURE DURING PREGNANCY
  6. ALBUTEROL [Suspect]
     Indication: DRUG EXPOSURE DURING PREGNANCY
  7. BECLOMETHASONE DIPROPIONATE [Suspect]
     Indication: DRUG EXPOSURE DURING PREGNANCY

REACTIONS (2)
  - DRUG EXPOSURE DURING PREGNANCY [None]
  - TALIPES [None]
